FAERS Safety Report 6656842-5 (Version None)
Quarter: 2010Q1

REPORT INFORMATION
  Report Type: 
  Country: None (occurrence: None)
  Receive Date: 20100325
  Receipt Date: 20100312
  Transmission Date: 20100710
  Serious: Yes (Hospitalization)
  Sender: FDA-Public Use
  Company Number: 231660J10USA

PATIENT
  Age: 30 Year
  Sex: Male
  Weight: 76 kg

DRUGS (1)
  1. REBIF [Suspect]
     Indication: MULTIPLE SCLEROSIS
     Dosage: 44 MCG, 3 IN 1 WEEKS, SUBCUTANEOUS
     Route: 058
     Dates: start: 20091207

REACTIONS (7)
  - AKINESIA [None]
  - FALL [None]
  - HYPERHIDROSIS [None]
  - PNEUMONIA [None]
  - PRESYNCOPE [None]
  - SPEECH DISORDER [None]
  - STARING [None]
